FAERS Safety Report 9159611 (Version 1)
Quarter: 2013Q1

REPORT INFORMATION
  Report Type: Spontaneous
  Country: US (occurrence: US)
  Receive Date: 20130313
  Receipt Date: 20130313
  Transmission Date: 20140127
  Serious: No
  Sender: FDA-Public Use
  Company Number: US-BAYER-2013-024950

PATIENT
  Age: 50 Year
  Sex: Male

DRUGS (3)
  1. LEVITRA [Suspect]
     Indication: ERECTILE DYSFUNCTION
     Dosage: 1 DF, VARIES
     Route: 048
     Dates: end: 20130223
  2. VITAMINS [Concomitant]
  3. AN ACID REFLUX PILL [Concomitant]
     Indication: GASTROOESOPHAGEAL REFLUX DISEASE

REACTIONS (4)
  - Sinus congestion [None]
  - Erythema [None]
  - Flushing [None]
  - Drug ineffective [Not Recovered/Not Resolved]
